FAERS Safety Report 4513641-8 (Version None)
Quarter: 2004Q4

REPORT INFORMATION
  Report Type: 
  Country: None (occurrence: None)
  Receive Date: 20041130
  Receipt Date: 20040818
  Transmission Date: 20050328
  Serious: No
  Sender: FDA-Public Use
  Company Number: US-GLAXOSMITHKLINE-A0522635A

PATIENT
  Age: 51 Year
  Sex: Female

DRUGS (17)
  1. WELLBUTRIN XL [Suspect]
     Indication: DEPRESSION
     Dosage: 300MG PER DAY
     Route: 048
     Dates: start: 20040714
  2. UNSPECIFIED MEDICATION [Concomitant]
     Indication: DEPRESSION
     Dosage: 60MG PER DAY
     Route: 048
     Dates: start: 20040825, end: 20040928
  3. LEXAPRO [Concomitant]
  4. ATIVAN [Concomitant]
  5. RESTORIL [Concomitant]
  6. SOMA [Concomitant]
  7. CODEINE [Concomitant]
  8. PREMARIN [Concomitant]
  9. FOSAMAX [Concomitant]
  10. PLAQUENIL [Concomitant]
  11. PREDNISONE [Concomitant]
  12. HUMIRA [Concomitant]
  13. NORCO [Concomitant]
  14. ACTONEL [Concomitant]
  15. M.V.I. [Concomitant]
  16. VITAMIN D [Concomitant]
  17. VITAMIN E [Concomitant]

REACTIONS (3)
  - ABDOMINAL PAIN [None]
  - DIARRHOEA [None]
  - NAUSEA [None]
